FAERS Safety Report 25057634 (Version 2)
Quarter: 2025Q2

REPORT INFORMATION
  Report Type: Spontaneous
  Country: US (occurrence: US)
  Receive Date: 20250310
  Receipt Date: 20250422
  Transmission Date: 20250717
  Serious: No
  Sender: CIPLA
  Company Number: US-CIPLA LTD.-2025US02766

PATIENT

DRUGS (1)
  1. DICLOFENAC [Suspect]
     Active Substance: DICLOFENAC
     Indication: Tic
     Route: 061

REACTIONS (3)
  - Illness [Unknown]
  - Off label use [Unknown]
  - Therapeutic response unexpected [Unknown]
